FAERS Safety Report 4704486-4 (Version None)
Quarter: 2005Q2

REPORT INFORMATION
  Report Type: 
  Country: None (occurrence: None)
  Receive Date: 20050628
  Receipt Date: 20050613
  Transmission Date: 20051028
  Serious: Yes (Other)
  Sender: FDA-Public Use
  Company Number: GBS050216715

PATIENT
  Age: 8 Year
  Sex: Male
  Weight: 28 kg

DRUGS (1)
  1. STRATTERA [Suspect]
     Indication: ATTENTION DEFICIT/HYPERACTIVITY DISORDER
     Dosage: 28 MG DAY
     Dates: start: 20041217

REACTIONS (4)
  - CHEST PAIN [None]
  - CONSTIPATION [None]
  - DISCOMFORT [None]
  - DYSPEPSIA [None]
